FAERS Safety Report 7770092-0 (Version None)
Quarter: 2011Q3

REPORT INFORMATION
  Report Type: 
  Country: None (occurrence: None)
  Receive Date: 20110922
  Receipt Date: 20110916
  Transmission Date: 20111222
  Serious: Yes (Other)
  Sender: FDA-Public Use
  Company Number: JP-ROCHE-774423

PATIENT
  Sex: Female
  Weight: 13 kg

DRUGS (4)
  1. TAMIFLU [Suspect]
     Indication: INFLUENZA
     Dosage: DRUG REPORTED: TAMIFLU DRY SYRUP 3%(OSELTAMIVIR)
     Route: 048
     Dates: start: 20110321, end: 20110321
  2. TAMIFLU [Suspect]
     Dosage: DRUG REPORTED: TAMIFLU DRY SYRUP 3%(OSELTAMIVIR)
     Route: 048
     Dates: start: 20110322, end: 20110322
  3. TAMIFLU [Suspect]
     Dosage: DRUG REPORTED: TAMIFLU DRY SYRUP 3%(OSELTAMIVIR)
     Route: 048
     Dates: start: 20110323, end: 20110323
  4. ACETAMINOPHEN [Concomitant]
     Route: 054
     Dates: start: 20110321, end: 20110321

REACTIONS (1)
  - ABNORMAL BEHAVIOUR [None]
